FAERS Safety Report 10010701 (Version 1)
Quarter: 2014Q1

REPORT INFORMATION
  Report Type: Spontaneous
  Country: US (occurrence: US)
  Receive Date: 20140314
  Receipt Date: 20140314
  Transmission Date: 20141002
  Serious: Yes (Other)
  Sender: FDA-Public Use
  Company Number: US-BAYER-2014-034908

PATIENT
  Sex: Male
  Weight: 104.31 kg

DRUGS (14)
  1. BETASERON [Suspect]
     Dosage: 0.3 MG, EVERY OTHER DAY
     Route: 058
  2. WELLBUTRIN XL [Concomitant]
     Dosage: 150 MG
  3. LOSARTAN POTASSIUM [Concomitant]
     Dosage: 25 MG
  4. CITRUCEL [Concomitant]
     Dosage: 500 MG
  5. CHONDROITIN W/GLUCOSAMINE [Concomitant]
  6. CALCIUM CITRATE W/VITAMIN D NOS [Concomitant]
  7. XARELTO [Concomitant]
     Dosage: 10 MG
  8. FLUTICASONE [Concomitant]
     Dosage: 50 MCG
  9. ASTEPRO [Concomitant]
     Dosage: 15 %
  10. LOVAZA [Concomitant]
     Dosage: 1 GM
  11. CRESTOR [Concomitant]
     Dosage: 10 MG
  12. NIASPAN [Concomitant]
     Dosage: 500 MG ER
  13. CONCERTA [Concomitant]
     Dosage: 54 MG
  14. AMPYRA [Concomitant]
     Dosage: 10 MG

REACTIONS (1)
  - Multiple sclerosis relapse [Unknown]
